FAERS Safety Report 24249219 (Version 3)
Quarter: 2024Q4

REPORT INFORMATION
  Report Type: Spontaneous
  Country: US (occurrence: US)
  Receive Date: 20240826
  Receipt Date: 20241028
  Transmission Date: 20250115
  Serious: No
  Sender: PFIZER
  Company Number: US-PFIZER INC-202400243114

PATIENT
  Age: 73 Year
  Sex: Male
  Weight: 61.224 kg

DRUGS (2)
  1. PAXLOVID [Suspect]
     Active Substance: NIRMATRELVIR\RITONAVIR
     Indication: COVID-19 treatment
     Dosage: 150 MG/100 MG, 2X/DAY
     Route: 048
     Dates: start: 20240814, end: 20240818
  2. SYNTHROID [Concomitant]
     Active Substance: LEVOTHYROXINE SODIUM
     Indication: Autoimmune thyroiditis
     Dosage: 0.1 MG, DAILY

REACTIONS (2)
  - COVID-19 [Recovered/Resolved]
  - Disease recurrence [Recovered/Resolved]

NARRATIVE: CASE EVENT DATE: 20240801
